FAERS Safety Report 10079259 (Version 3)
Quarter: 2014Q3

REPORT INFORMATION
  Report Type: Spontaneous
  Country: IT (occurrence: IT)
  Receive Date: 20140415
  Receipt Date: 20140710
  Transmission Date: 20150326
  Serious: Yes (Life-Threatening)
  Sender: FDA-Public Use
  Company Number: IT-B.I. PHARMACEUTICALS,INC./RIDGEFIELD-2014-BI-16920IT

PATIENT
  Age: 82 Year
  Sex: Female
  Weight: 87 kg

DRUGS (7)
  1. LASIX [Concomitant]
     Active Substance: FUROSEMIDE
     Indication: CARDIAC FAILURE
     Route: 048
  2. ATARAX [Concomitant]
     Active Substance: HYDROXYZINE\HYDROXYZINE HYDROCHLORIDE
     Indication: DERMATITIS
     Dosage: FORMULATION: DIVISIBLE FILM-COATED TABLET
     Route: 048
     Dates: start: 20140227, end: 20140411
  3. KESTINE [Concomitant]
     Active Substance: EBASTINE
     Indication: DERMATITIS
     Dosage: FORMULATION: FILM-COATED TABLET.
     Route: 048
     Dates: start: 20140227, end: 20140411
  4. BIFRIL [Concomitant]
     Active Substance: ZOFENOPRIL
     Indication: CARDIAC FAILURE
     Dosage: FORMULATION:FILM COATED TABLET
     Route: 048
  5. LUVION [Concomitant]
     Active Substance: CANRENONE
     Indication: CARDIAC FAILURE
     Route: 048
  6. PRADAXA [Suspect]
     Active Substance: DABIGATRAN ETEXILATE MESYLATE
     Indication: ATRIAL FIBRILLATION
     Route: 048
     Dates: start: 20131201, end: 20140228
  7. CARDICOR [Concomitant]
     Active Substance: BISOPROLOL
     Indication: CARDIAC FAILURE
     Dosage: FORMULATION: FILM COATED TABLET
     Route: 048

REACTIONS (6)
  - Renal failure [Recovered/Resolved]
  - Coagulopathy [Recovered/Resolved]
  - Dehydration [Recovered/Resolved]
  - Hypotension [Recovered/Resolved]
  - Vomiting [Recovered/Resolved]
  - Diarrhoea [Recovered/Resolved]

NARRATIVE: CASE EVENT DATE: 20140228
